FAERS Safety Report 8826084 (Version 1)
Quarter: 2012Q4

REPORT INFORMATION
  Report Type: Report from Study
  Country: BE (occurrence: BE)
  Receive Date: 20121005
  Receipt Date: 20121005
  Transmission Date: 20130627
  Serious: Yes (Hospitalization)
  Sender: FDA-Public Use
  Company Number: BE-ROCHE-1137308

PATIENT
  Age: 73 Year
  Sex: Male

DRUGS (7)
  1. AVASTIN [Suspect]
     Indication: RECTAL CANCER
     Route: 042
     Dates: start: 20120731, end: 20120731
  2. LASIX [Concomitant]
     Indication: PULMONARY OEDEMA
     Route: 042
     Dates: start: 20120912, end: 20120912
  3. NITRATES (VARIOUS) [Concomitant]
     Indication: PULMONARY OEDEMA
     Route: 065
     Dates: start: 20120912, end: 20120912
  4. EMCONCOR [Concomitant]
     Indication: HYPERTENSION
     Route: 048
     Dates: start: 20120913
  5. ALDACTONE [Concomitant]
  6. CLEXANE [Concomitant]
     Indication: ANTICOAGULANT THERAPY
     Dosage: 80/mg/0.8 ml
     Route: 042
     Dates: start: 20120913
  7. APROVEL [Concomitant]
     Indication: HYPERTENSION
     Route: 048
     Dates: start: 20120913

REACTIONS (4)
  - Acute pulmonary oedema [Recovered/Resolved]
  - Atrial fibrillation [Not Recovered/Not Resolved]
  - Renal failure chronic [Not Recovered/Not Resolved]
  - Hypertension [Unknown]
